FAERS Safety Report 4795642-8 (Version None)
Quarter: 2005Q4

REPORT INFORMATION
  Report Type: 
  Country: None (occurrence: None)
  Receive Date: 20051007
  Receipt Date: 20051007
  Transmission Date: 20060501
  Serious: Yes (Life-Threatening, Hospitalization)
  Sender: FDA-Public Use
  Company Number: None

PATIENT
  Age: 66 Year
  Sex: Female
  Weight: 77.5651 kg

DRUGS (1)
  1. DEPODUR [Suspect]
     Indication: PAIN PROPHYLAXIS
     Dosage: 20MG ONCE EPIDURAL
     Route: 008
     Dates: start: 20051004, end: 20051004

REACTIONS (5)
  - BRADYCARDIA [None]
  - HYPOTENSION [None]
  - NAUSEA [None]
  - OXYGEN SATURATION DECREASED [None]
  - POST PROCEDURAL COMPLICATION [None]
